FAERS Safety Report 7480963-0 (Version None)
Quarter: 2011Q2

REPORT INFORMATION
  Report Type: 
  Country: None (occurrence: None)
  Receive Date: 20110512
  Receipt Date: 20110512
  Transmission Date: 20111010
  Serious: Yes (Life-Threatening, Other)
  Sender: FDA-Public Use
  Company Number: None

PATIENT
  Sex: Female
  Weight: 77.1115 kg

DRUGS (1)
  1. PROCRIT [Suspect]
     Indication: ANAEMIA
     Dosage: 20, 000 U/ML 1 ML VIAL MO. ARM
     Dates: start: 20110201, end: 20110401

REACTIONS (12)
  - MYALGIA [None]
  - ABASIA [None]
  - ASTHENIA [None]
  - DECREASED APPETITE [None]
  - DYSSTASIA [None]
  - THINKING ABNORMAL [None]
  - INJECTION SITE PAIN [None]
  - ARTHRALGIA [None]
  - TREMOR [None]
  - PYREXIA [None]
  - OEDEMA PERIPHERAL [None]
  - DRUG INEFFECTIVE [None]
